FAERS Safety Report 21980805 (Version 2)
Quarter: 2025Q3

REPORT INFORMATION
  Report Type: Report from Study
  Country: EU (occurrence: EU)
  Receive Date: 20230211
  Receipt Date: 20250911
  Transmission Date: 20251021
  Serious: Yes (Other)
  Sender: AUROBINDO
  Company Number: EU-002147023-PHHY2019DE094750

PATIENT
  Age: 62 Year
  Sex: Male

DRUGS (2)
  1. IMATINIB [Suspect]
     Active Substance: IMATINIB
     Indication: Chordoma
     Route: 065
  2. SIROLIMUS [Suspect]
     Active Substance: SIROLIMUS
     Indication: Chordoma
     Route: 065

REACTIONS (5)
  - Malignant neoplasm progression [Unknown]
  - Chordoma [Unknown]
  - Product use in unapproved indication [Unknown]
  - Disease progression [Unknown]
  - Drug ineffective for unapproved indication [Unknown]
